FAERS Safety Report 8342815-3 (Version None)
Quarter: 2012Q2

REPORT INFORMATION
  Report Type: 
  Country: None (occurrence: None)
  Receive Date: 20120504
  Receipt Date: 20120504
  Transmission Date: 20120825
  Serious: Yes (Hospitalization)
  Sender: FDA-Public Use
  Company Number: None

PATIENT
  Sex: Male
  Weight: 63 kg

DRUGS (1)
  1. MEMANTINE HCL [Suspect]
     Dosage: 80 MG

REACTIONS (8)
  - DECREASED APPETITE [None]
  - HEADACHE [None]
  - DIZZINESS [None]
  - LETHARGY [None]
  - DYSGEUSIA [None]
  - WEIGHT DECREASED [None]
  - MALAISE [None]
  - FATIGUE [None]
